FAERS Safety Report 9302964 (Version 1)
Quarter: 2013Q2

REPORT INFORMATION
  Report Type: Spontaneous
  Country: US (occurrence: None)
  Receive Date: 20130517
  Receipt Date: 20130517
  Transmission Date: 20140414
  Serious: Yes (Hospitalization, Other)
  Sender: FDA-Public Use
  Company Number: 2013P1005690

PATIENT
  Age: 75 Year
  Sex: Female

DRUGS (2)
  1. DIPHENHYDRAMINE [Suspect]
     Indication: RASH PRURITIC
  2. HYDROXYZINE [Suspect]
     Indication: RASH PRURITIC

REACTIONS (2)
  - Confusional state [None]
  - Dermatosis [None]
